FAERS Safety Report 6115860-6 (Version None)
Quarter: 2009Q1

REPORT INFORMATION
  Report Type: 
  Country: None (occurrence: None)
  Receive Date: 20090311
  Receipt Date: 20090226
  Transmission Date: 20090719
  Serious: Yes (Other)
  Sender: FDA-Public Use
  Company Number: 231155K09USA

PATIENT
  Age: 26 Year
  Sex: Female

DRUGS (3)
  1. REBIF [Suspect]
     Indication: MULTIPLE SCLEROSIS
     Dosage: 44 MCG, 3 IN 1 WEEKS, SUBCUTANEOUS; NOT REPORTED, 3 IN 1 WEEKS, SUBCUTANEOUS,
     Route: 058
     Dates: start: 20070606, end: 20080103
  2. REBIF [Suspect]
     Indication: MULTIPLE SCLEROSIS
     Dosage: 44 MCG, 3 IN 1 WEEKS, SUBCUTANEOUS; NOT REPORTED, 3 IN 1 WEEKS, SUBCUTANEOUS,
     Route: 058
     Dates: start: 20081101, end: 20081201
  3. REBIF [Suspect]
     Indication: MULTIPLE SCLEROSIS
     Dosage: 44 MCG, 3 IN 1 WEEKS, SUBCUTANEOUS; NOT REPORTED, 3 IN 1 WEEKS, SUBCUTANEOUS,
     Route: 058
     Dates: start: 20081201, end: 20090201

REACTIONS (2)
  - ADENOID CYSTIC CARCINOMA [None]
  - INFLUENZA LIKE ILLNESS [None]
